FAERS Safety Report 4952917-7 (Version None)
Quarter: 2006Q1

REPORT INFORMATION
  Report Type: 
  Country: None (occurrence: None)
  Receive Date: 20060321
  Receipt Date: 20060308
  Transmission Date: 20060701
  Serious: Yes (Disabling)
  Sender: FDA-Public Use
  Company Number: 2006RL000076

PATIENT
  Age: 58 Year
  Sex: Male
  Weight: 95.0286 kg

DRUGS (1)
  1. ISRADIPINE [Suspect]
     Indication: HYPERTENSION
     Dosage: 2.5 MG;QD;PO
     Route: 048
     Dates: start: 20050919, end: 20051124

REACTIONS (1)
  - HYDROCELE [None]
